FAERS Safety Report 11177496 (Version 1)
Quarter: 2015Q2

REPORT INFORMATION
  Report Type: Spontaneous
  Country: US (occurrence: None)
  Receive Date: 20150515
  Receipt Date: 20150515
  Transmission Date: 20150821
  Serious: Yes (Other)
  Sender: FDA-Public Use
  Company Number: 2014005290

PATIENT
  Age: 38 Year
  Sex: Male

DRUGS (1)
  1. CIMZIA [Suspect]
     Active Substance: CERTOLIZUMAB PEGOL
     Indication: CROHN^S DISEASE
     Dates: start: 20140625, end: 2014

REACTIONS (3)
  - Abdominal pain [None]
  - Abscess [None]
  - Diarrhoea [None]

NARRATIVE: CASE EVENT DATE: 201406
